FAERS Safety Report 6839473-3 (Version None)
Quarter: 2010Q3

REPORT INFORMATION
  Report Type: 
  Country: None (occurrence: None)
  Receive Date: 20100714
  Receipt Date: 20090925
  Transmission Date: 20110219
  Serious: No
  Sender: FDA-Public Use
  Company Number: A0799216A

PATIENT
  Age: 69 Year
  Sex: Female

DRUGS (7)
  1. FLOVENT [Suspect]
     Indication: CHRONIC OBSTRUCTIVE PULMONARY DISEASE
     Dosage: 2PUFF TWICE PER DAY
     Route: 055
     Dates: start: 20090717
  2. XOPENEX [Concomitant]
  3. FORTICAL [Concomitant]
  4. ALPRAZOLAM [Concomitant]
  5. ASPIRIN [Concomitant]
  6. BENEFIBER [Concomitant]
  7. MULTI-VITAMIN [Concomitant]

REACTIONS (8)
  - BODY TEMPERATURE DECREASED [None]
  - CHILLS [None]
  - COUGH [None]
  - DRY THROAT [None]
  - DYSPHONIA [None]
  - NASAL CONGESTION [None]
  - PRODUCT QUALITY ISSUE [None]
  - THROAT IRRITATION [None]
